FAERS Safety Report 11390779 (Version 1)
Quarter: 2015Q3

REPORT INFORMATION
  Report Type: Spontaneous
  Country: GB (occurrence: GB)
  Receive Date: 20150818
  Receipt Date: 20150818
  Transmission Date: 20151125
  Serious: Yes (Other)
  Sender: FDA-Public Use
  Company Number: GB-ACCORD-032966

PATIENT
  Age: 65 Year
  Sex: Male
  Weight: 94 kg

DRUGS (10)
  1. INDAPAMIDE/INDAPAMIDE HEMIHYDRATE [Concomitant]
     Dosage: EACH MORNING
     Dates: start: 20150727
  2. METFORMIN [Concomitant]
     Active Substance: METFORMIN HYDROCHLORIDE
     Dates: start: 20141121
  3. SIMVASTATIN. [Concomitant]
     Active Substance: SIMVASTATIN
     Dosage: AT NIGHT
     Dates: start: 20141121
  4. TADALAFIL [Concomitant]
     Active Substance: TADALAFIL
     Dosage: USE AS DIRECTED
     Dates: start: 20150727, end: 20150728
  5. GLICLAZIDE [Concomitant]
     Active Substance: GLICLAZIDE
     Dosage: BEFORE BREAKFAST AND DINNER
     Dates: start: 20141121
  6. PIOGLITAZONE/PIOGLITAZONE HYDROCHLORIDE [Concomitant]
     Dates: start: 20141121
  7. AMLODIPINE [Suspect]
     Active Substance: AMLODIPINE BESYLATE
     Indication: PRODUCT USED FOR UNKNOWN INDICATION
     Dates: start: 20141121
  8. CALCIPOTRIOL [Concomitant]
     Active Substance: CALCIPOTRIENE
     Dates: start: 20150410
  9. SILDENAFIL. [Concomitant]
     Active Substance: SILDENAFIL
     Dosage: USE AS DIRECTED
     Dates: start: 20150604, end: 20150702
  10. FLEXITOL HEEL BALM [Concomitant]
     Indication: DRY SKIN
     Dates: start: 20150728

REACTIONS (2)
  - Gingival hyperplasia [Unknown]
  - Gingivitis [Unknown]

NARRATIVE: CASE EVENT DATE: 20150728
